FAERS Safety Report 6215654-7 (Version None)
Quarter: 2009Q2

REPORT INFORMATION
  Report Type: 
  Country: None (occurrence: None)
  Receive Date: 20090605
  Receipt Date: 20090526
  Transmission Date: 20091009
  Serious: Yes (Hospitalization, Disabling)
  Sender: FDA-Public Use
  Company Number: PHHY2009NZ05953

PATIENT
  Sex: Male

DRUGS (2)
  1. CLOZARIL [Suspect]
     Indication: SCHIZOPHRENIA
     Dosage: 275 MG, QHS
     Route: 048
  2. VALPAX [Concomitant]
     Dosage: 0.5 MG

REACTIONS (2)
  - BREATH ODOUR [None]
  - CONSTIPATION [None]
